FAERS Safety Report 17635418 (Version 1)
Quarter: 2020Q2

REPORT INFORMATION
  Report Type: Report from Study
  Country: US (occurrence: US)
  Receive Date: 20200406
  Receipt Date: 20200406
  Transmission Date: 20200713
  Serious: Yes (Hospitalization, Other)
  Sender: FDA-Public Use
  Company Number: US-VIFOR (INTERNATIONAL) INC.-VIT-2019-07383

PATIENT
  Age: 76 Year
  Sex: Female

DRUGS (11)
  1. VELTASSA [Suspect]
     Active Substance: PATIROMER
     Route: 048
     Dates: start: 20191030
  2. VELTASSA [Suspect]
     Active Substance: PATIROMER
     Dosage: 4 TEASPOONS OF POWDER IN 2 OUNCES OF WATER/APPLE JUICE, 454 GRAMS OR 1 POUND OF POWDER IN CONTAINER
     Route: 048
     Dates: start: 2019
  3. COUMADIN [Concomitant]
     Active Substance: WARFARIN SODIUM
  4. VITAMIN D [Concomitant]
     Active Substance: VITAMIN D NOS
  5. HUMALOG [Concomitant]
     Active Substance: INSULIN LISPRO
  6. FLUDROCORTISONE [Concomitant]
     Active Substance: FLUDROCORTISONE
  7. LANTUS [Concomitant]
     Active Substance: INSULIN GLARGINE
  8. BABY ASPIRIN [Concomitant]
     Active Substance: ASPIRIN
  9. VELTASSA [Suspect]
     Active Substance: PATIROMER
     Indication: HYPERKALAEMIA
     Route: 048
     Dates: start: 20190629
  10. BUSPIRONE [Suspect]
     Active Substance: BUSPIRONE HYDROCHLORIDE
     Indication: ANXIETY
  11. ATORVASTATIN [Concomitant]
     Active Substance: ATORVASTATIN

REACTIONS (22)
  - Asthenia [Not Recovered/Not Resolved]
  - Abdominal pain upper [Not Recovered/Not Resolved]
  - Product label on wrong product [Unknown]
  - Chest discomfort [Not Recovered/Not Resolved]
  - Malaise [Not Recovered/Not Resolved]
  - Constipation [Not Recovered/Not Resolved]
  - Sinus disorder [Unknown]
  - Fatigue [Not Recovered/Not Resolved]
  - Faeces discoloured [Not Recovered/Not Resolved]
  - Abdominal discomfort [Unknown]
  - Diarrhoea [Not Recovered/Not Resolved]
  - Circumstance or information capable of leading to medication error [Unknown]
  - Hospitalisation [Recovered/Resolved]
  - Dyspnoea [Not Recovered/Not Resolved]
  - Urinary retention [Not Recovered/Not Resolved]
  - Cough [Unknown]
  - Emotional distress [Not Recovered/Not Resolved]
  - Heart rate irregular [Not Recovered/Not Resolved]
  - Micturition urgency [Not Recovered/Not Resolved]
  - Memory impairment [Not Recovered/Not Resolved]
  - Constipation [Not Recovered/Not Resolved]
  - Inappropriate schedule of product administration [Unknown]

NARRATIVE: CASE EVENT DATE: 2019
